FAERS Safety Report 9540483 (Version 1)
Quarter: 2013Q3

REPORT INFORMATION
  Report Type: Spontaneous
  Country: AU (occurrence: AU)
  Receive Date: 20130920
  Receipt Date: 20130920
  Transmission Date: 20140515
  Serious: Yes (Other)
  Sender: FDA-Public Use
  Company Number: PHHY2013AU102813

PATIENT
  Age: 48 Year
  Sex: 0

DRUGS (1)
  1. LEVODOPA+CARBIDOPA [Suspect]
     Indication: PARKINSON^S DISEASE
     Dosage: 1500 MG, DAILY
     Route: 048

REACTIONS (2)
  - Peripheral sensory neuropathy [Not Recovered/Not Resolved]
  - Ataxia [Not Recovered/Not Resolved]
